FAERS Safety Report 19936047 (Version 1)
Quarter: 2021Q4

REPORT INFORMATION
  Report Type: Spontaneous
  Country: US (occurrence: US)
  Receive Date: 20211008
  Receipt Date: 20211008
  Transmission Date: 20220303
  Serious: Yes (Hospitalization, Other)
  Sender: FDA-Public Use
  Company Number: US-009507513-2110USA001685

PATIENT

DRUGS (2)
  1. PROVENTIL [Suspect]
     Active Substance: ALBUTEROL
     Dosage: UNK
     Dates: start: 20160730
  2. BREO ELLIPTA [Suspect]
     Active Substance: FLUTICASONE FUROATE\VILANTEROL TRIFENATATE
     Dosage: UNK
     Dates: start: 20180730

REACTIONS (10)
  - Fall [Unknown]
  - Pain [Not Recovered/Not Resolved]
  - Upper limb fracture [Unknown]
  - Joint dislocation [Unknown]
  - Epistaxis [Unknown]
  - Mouth haemorrhage [Unknown]
  - Hip fracture [Unknown]
  - Ligament sprain [Unknown]
  - Jaw fracture [Unknown]
  - Facial bones fracture [Unknown]

NARRATIVE: CASE EVENT DATE: 20210625
